FAERS Safety Report 5377223-0 (Version None)
Quarter: 2007Q3

REPORT INFORMATION
  Report Type: 
  Country: None (occurrence: None)
  Receive Date: 20070703
  Receipt Date: 20070622
  Transmission Date: 20080115
  Serious: Yes (Death)
  Sender: FDA-Public Use
  Company Number: JP-SANOFI-SYNTHELABO-A01200707006

PATIENT
  Age: 74 Year
  Sex: Male

DRUGS (3)
  1. ISOVORIN [Concomitant]
     Dosage: UNK
     Route: 041
     Dates: start: 20070605, end: 20070606
  2. OXALIPLATIN [Suspect]
     Route: 041
     Dates: start: 20070605, end: 20070605
  3. FLUOROURACIL [Concomitant]
     Dosage: DOSAGE UNKNOWN IN BOLUS THEN DOSAGE UNKNOWN AS CONTINOUS INFUSION ON DAY 1-2
     Route: 041
     Dates: start: 20070605, end: 20070606

REACTIONS (1)
  - INTERSTITIAL LUNG DISEASE [None]
